FAERS Safety Report 9192019 (Version 1)
Quarter: 2013Q1

REPORT INFORMATION
  Report Type: Spontaneous
  Country: US (occurrence: None)
  Receive Date: 20120703
  Receipt Date: 20120703
  Transmission Date: 20140127
  Serious: Yes (Other)
  Sender: FDA-Public Use
  Company Number: PHEH2012US009029

PATIENT
  Age: 73 Year
  Sex: Female
  Weight: 59 kg

DRUGS (11)
  1. GILENYA [Suspect]
     Indication: MULTIPLE SCLEROSIS
     Route: 048
     Dates: start: 20110517
  2. PREDNISONE (PREDNISIONE) [Concomitant]
  3. NEURONTIN (GABAPENTIN) [Concomitant]
  4. URSODIOL (URSODEOXCHOLIC ACID) [Concomitant]
  5. DIOVAN (VALSARTAN) [Concomitant]
  6. ENABLEX (DARIFENACIN HYDROBROMIDE) [Concomitant]
  7. VITAMIN D (ERGOCALCIFEROL) [Concomitant]
  8. VITAMIN B12 (CYANOCOBALMIN) [Concomitant]
  9. FORTEO (TERIPARTIDE) [Concomitant]
  10. ONGLYZA (SAXAGLIPTIN) [Concomitant]
  11. GLYCEROL (GLYCEROL) [Concomitant]

REACTIONS (2)
  - Cough [None]
  - Headache [None]
